FAERS Safety Report 25509877 (Version 1)
Quarter: 2025Q3

REPORT INFORMATION
  Report Type: Spontaneous
  Country: US (occurrence: US)
  Receive Date: 20250703
  Receipt Date: 20250703
  Transmission Date: 20251020
  Serious: No
  Sender: RADIUS PHARM
  Company Number: US-RADIUS HEALTH INC.-2024US005692

PATIENT
  Age: 60 Year
  Sex: Female

DRUGS (1)
  1. TYMLOS [Suspect]
     Active Substance: ABALOPARATIDE
     Indication: Osteoporotic fracture
     Route: 058

REACTIONS (10)
  - Pain [Unknown]
  - Dysphonia [Unknown]
  - Bone pain [Unknown]
  - Back pain [Unknown]
  - Aphasia [Recovering/Resolving]
  - Illness [Unknown]
  - Intentional product misuse [Unknown]
  - Brain fog [Recovered/Resolved]
  - Intentional dose omission [Unknown]
  - Fatigue [Unknown]

NARRATIVE: CASE EVENT DATE: 20240701
